FAERS Safety Report 5423577-6 (Version None)
Quarter: 2007Q3

REPORT INFORMATION
  Report Type: 
  Country: None (occurrence: None)
  Receive Date: 20070823
  Receipt Date: 20070814
  Transmission Date: 20080115
  Serious: Yes (Hospitalization, Disabling, Other)
  Sender: FDA-Public Use
  Company Number: US-BAYER-200614710BWH

PATIENT
  Age: 53 Year
  Sex: Male

DRUGS (1)
  1. NEXAVAR [Suspect]
     Indication: RENAL CELL CARCINOMA STAGE UNSPECIFIED
     Dosage: TOTAL DAILY DOSE: 800 MG  UNIT DOSE: 200 MG
     Route: 048
     Dates: start: 20060523, end: 20060725

REACTIONS (24)
  - ADRENAL INSUFFICIENCY [None]
  - ANOREXIA [None]
  - COUGH [None]
  - DEPRESSION [None]
  - DIARRHOEA [None]
  - DIZZINESS POSTURAL [None]
  - DRY MOUTH [None]
  - DRY SKIN [None]
  - DYSARTHRIA [None]
  - DYSPHONIA [None]
  - FATIGUE [None]
  - HYPERSOMNIA [None]
  - ISCHAEMIC STROKE [None]
  - LEFT VENTRICULAR DYSFUNCTION [None]
  - LUNG INFILTRATION [None]
  - METASTASES TO ADRENALS [None]
  - METASTASES TO SOFT TISSUE [None]
  - MUSCULAR WEAKNESS [None]
  - ORAL DISCOMFORT [None]
  - PERFORMANCE STATUS DECREASED [None]
  - PULMONARY MASS [None]
  - RENAL CELL CARCINOMA STAGE UNSPECIFIED [None]
  - WEIGHT DECREASED [None]
  - WHEELCHAIR USER [None]
